FAERS Safety Report 5972641-1 (Version None)
Quarter: 2008Q4

REPORT INFORMATION
  Report Type: 
  Country: None (occurrence: None)
  Receive Date: 20081126
  Receipt Date: 20081126
  Transmission Date: 20090506
  Serious: Yes (Life-Threatening)
  Sender: FDA-Public Use
  Company Number: None

PATIENT
  Age: 90 Year
  Sex: Male
  Weight: 55 kg

DRUGS (1)
  1. MORPHINE [Suspect]
     Indication: RESPIRATORY DISTRESS
     Dosage: 2MG Q2H PRN IV
     Route: 042
     Dates: start: 20080406, end: 20080406

REACTIONS (1)
  - TACHYCARDIA [None]
